FAERS Safety Report 4901860-8 (Version None)
Quarter: 2006Q1

REPORT INFORMATION
  Report Type: 
  Country: None (occurrence: None)
  Receive Date: 20060203
  Receipt Date: 20060203
  Transmission Date: 20060701
  Serious: Yes (Life-Threatening, Congenital Anomaly, Other)
  Sender: FDA-Public Use
  Company Number: None

PATIENT
  Age: 18 Year
  Sex: Female
  Weight: 118.3888 kg

DRUGS (1)
  1. DEPO-PROVERA [Suspect]

REACTIONS (6)
  - BREAST TENDERNESS [None]
  - DEPRESSION [None]
  - HYPERSENSITIVITY [None]
  - MENSTRUATION IRREGULAR [None]
  - SEXUAL DYSFUNCTION [None]
  - WEIGHT INCREASED [None]
